FAERS Safety Report 17103654 (Version 1)
Quarter: 2019Q4

REPORT INFORMATION
  Report Type: Report from Study
  Country: DE (occurrence: DE)
  Receive Date: 20191203
  Receipt Date: 20191203
  Transmission Date: 20200122
  Serious: Yes (Hospitalization, Other)
  Sender: FDA-Public Use
  Company Number: DE-BRISTOL-MYERS SQUIBB COMPANY-BMS-2019-114323

PATIENT
  Age: 84 Year
  Sex: Male

DRUGS (12)
  1. RITUXIMAB. [Suspect]
     Active Substance: RITUXIMAB
     Indication: B-CELL LYMPHOMA
     Dosage: 760 MILLIGRAM, QCYCLE
     Route: 042
     Dates: start: 20191111, end: 20191111
  2. EPLERENONE. [Concomitant]
     Active Substance: EPLERENONE
     Indication: ISCHAEMIC CARDIOMYOPATHY
     Dosage: 12.5 MILLIGRAM, QD
     Route: 048
     Dates: start: 199904
  3. COTRIMAXAZOLE [Concomitant]
     Active Substance: SULFAMETHOXAZOLE\TRIMETHOPRIM
     Indication: ANTIFUNGAL PROPHYLAXIS
     Dosage: 800/160 MG TWICE WEEKLY
     Route: 048
     Dates: start: 201902
  4. GEMCITABINE HYDROCHLORIDE. [Suspect]
     Active Substance: GEMCITABINE HYDROCHLORIDE
     Indication: B-CELL LYMPHOMA
     Dosage: 2020 MILLIGRAM, QCYCLE
     Route: 042
     Dates: start: 20191112, end: 20191112
  5. LEVETIRACETAM. [Concomitant]
     Active Substance: LEVETIRACETAM
     Indication: CEREBROVASCULAR ACCIDENT
     Dosage: 1000 MILLIGRAM, BID
     Route: 048
     Dates: start: 199907
  6. OXALIPLATIN. [Suspect]
     Active Substance: OXALIPLATIN
     Indication: B-CELL LYMPHOMA
     Dosage: 202.50 MILLIGRAM, QCYCLE
     Route: 042
     Dates: start: 20191112, end: 20191112
  7. PEGFILGRASTIM [Suspect]
     Active Substance: PEGFILGRASTIM
     Indication: B-CELL LYMPHOMA
     Dosage: 6 MILLIGRAM, QCYCLE
     Route: 058
     Dates: start: 20191120, end: 20191120
  8. APIXABAN [Concomitant]
     Active Substance: APIXABAN
     Indication: ATRIAL FIBRILLATION
     Dosage: 2.5 MILLIGRAM, BID
     Route: 048
     Dates: start: 201904
  9. AMIODARONE [Concomitant]
     Active Substance: AMIODARONE
     Indication: ATRIAL FIBRILLATION
     Dosage: 200 MILLIGRAM, QD
     Route: 048
     Dates: start: 201904
  10. ACICLOVIR [Concomitant]
     Active Substance: ACYCLOVIR
     Indication: PROPHYLAXIS
     Dosage: 200 MILLIGRAM, BID
     Route: 048
     Dates: start: 201902
  11. TORASEMID [Concomitant]
     Active Substance: TORSEMIDE
     Indication: ISCHAEMIC CARDIOMYOPATHY
     Dosage: 15 MILLIGRAM, QD
     Route: 048
     Dates: start: 201904
  12. NIVOLUMAB [Suspect]
     Active Substance: NIVOLUMAB
     Indication: B-CELL LYMPHOMA
     Dosage: 255 MILLIGRAM, QCYCLE
     Route: 042
     Dates: start: 20191108, end: 20191108

REACTIONS (1)
  - Neutropenic infection [Recovered/Resolved]

NARRATIVE: CASE EVENT DATE: 20191122
